FAERS Safety Report 5211823-3 (Version None)
Quarter: 2007Q1

REPORT INFORMATION
  Report Type: 
  Country: None (occurrence: None)
  Receive Date: 20070118
  Receipt Date: 20070104
  Transmission Date: 20070707
  Serious: Yes (Hospitalization)
  Sender: FDA-Public Use
  Company Number: US-ELI_LILLY_AND_COMPANY-US200609002327

PATIENT
  Sex: Female

DRUGS (2)
  1. FORTEO [Suspect]
     Indication: OSTEOPOROSIS
     Dosage: UNK, UNK
     Dates: start: 20050127
  2. FORTEO [Suspect]
     Dates: start: 20060101

REACTIONS (3)
  - BACK PAIN [None]
  - INTESTINAL OBSTRUCTION [None]
  - NEPHROLITHIASIS [None]
